FAERS Safety Report 5154450-9 (Version None)
Quarter: 2006Q4

REPORT INFORMATION
  Report Type: 
  Country: None (occurrence: None)
  Receive Date: 20061114
  Receipt Date: 20061102
  Transmission Date: 20070319
  Serious: Yes (Other)
  Sender: FDA-Public Use
  Company Number: 2006127303

PATIENT
  Age: 32 Year
  Sex: Male
  Weight: 138 kg

DRUGS (12)
  1. GENOTROPIN [Suspect]
     Indication: HYPOPITUITARISM
     Dosage: SEE IMAGE
     Route: 058
     Dates: start: 20060202
  2. CORTEF [Concomitant]
  3. LEVOTHYROXINE SODIUM [Concomitant]
  4. DESMOPRESSIN ACETATE (DESMOPRESSIN ACETATE) [Concomitant]
  5. PARLODEL [Concomitant]
  6. SERTRALINE [Concomitant]
  7. CAVINTON (VINPOCETINE) [Concomitant]
  8. URSO FALK [Concomitant]
  9. MILURIT (ALLOPURINOL) [Concomitant]
  10. METFORMIN HCL [Concomitant]
  11. HYDROCORTISONE [Concomitant]
  12. TESTOSTERONE [Concomitant]

REACTIONS (2)
  - CRANIOPHARYNGIOMA [None]
  - NEOPLASM RECURRENCE [None]
